FAERS Safety Report 7690670-7 (Version None)
Quarter: 2011Q3

REPORT INFORMATION
  Report Type: 
  Country: None (occurrence: None)
  Receive Date: 20110818
  Receipt Date: 20110808
  Transmission Date: 20111222
  Serious: Yes (Other)
  Sender: FDA-Public Use
  Company Number: US-BRISTOL-MYERS SQUIBB COMPANY-15952963

PATIENT
  Age: 56 Year
  Sex: Male

DRUGS (2)
  1. TRIAMCINOLONE ACETONIDE [Suspect]
     Indication: BACK PAIN
     Dosage: 2ML (STRENGTH: 40MG/ML)
     Route: 008
  2. TRIAMCINOLONE ACETONIDE [Suspect]
     Indication: PAIN IN EXTREMITY
     Dosage: 2ML (STRENGTH: 40MG/ML)
     Route: 008

REACTIONS (1)
  - EPIDURAL LIPOMATOSIS [None]
